FAERS Safety Report 23189467 (Version 4)
Quarter: 2024Q1

REPORT INFORMATION
  Report Type: Spontaneous
  Country: JP (occurrence: JP)
  Receive Date: 20231116
  Receipt Date: 20240223
  Transmission Date: 20240410
  Serious: Yes (Hospitalization)
  Sender: FDA-Public Use
  Company Number: JP-DSJP-DSJ-2023-145961

PATIENT
  Age: 67 Year
  Sex: Female

DRUGS (1)
  1. DENOSUMAB [Suspect]
     Active Substance: DENOSUMAB
     Indication: Osteoporosis
     Dosage: UNK
     Route: 058
     Dates: start: 202007

REACTIONS (6)
  - Anaemia [Recovering/Resolving]
  - Osteonecrosis of jaw [Unknown]
  - Periprosthetic fracture [Unknown]
  - Periodontitis [Not Recovered/Not Resolved]
  - Fall [Unknown]
  - Femur fracture [Recovered/Resolved]

NARRATIVE: CASE EVENT DATE: 20211101
